FAERS Safety Report 13332689 (Version 1)
Quarter: 2017Q1

REPORT INFORMATION
  Report Type: Spontaneous
  Country: US (occurrence: US)
  Receive Date: 20170314
  Receipt Date: 20170314
  Transmission Date: 20170428
  Serious: No
  Sender: FDA-Public Use
  Company Number: None

PATIENT
  Age: 80 Year
  Sex: Female
  Weight: 52.65 kg

DRUGS (1)
  1. SIMPONI ARIA [Suspect]
     Active Substance: GOLIMUMAB
     Indication: OSTEOARTHRITIS
     Dosage: OTHER FREQUENCY:4 WEEKS THEN 8WEEK;?
     Route: 058
     Dates: start: 20170117

REACTIONS (1)
  - Varicella [None]

NARRATIVE: CASE EVENT DATE: 20170306
